FAERS Safety Report 9455935 (Version 2)
Quarter: 2013Q3

REPORT INFORMATION
  Report Type: Spontaneous
  Country: AU (occurrence: AU)
  Receive Date: 20130813
  Receipt Date: 20130821
  Transmission Date: 20140515
  Serious: Yes (Other)
  Sender: FDA-Public Use
  Company Number: AU-PFIZER INC-2013233354

PATIENT
  Age: 71 Year
  Sex: Male

DRUGS (7)
  1. RAMIPRIL [Suspect]
     Dosage: 2.5 MG, DAILY
     Dates: start: 20100410, end: 20100504
  2. VANCOMYCIN HYDROCHLORIDE [Suspect]
     Dosage: 750 MG, DAILY
     Route: 042
     Dates: start: 20100405, end: 20100504
  3. AMIODARONE HYDROCHLORIDE [Concomitant]
     Dosage: UNK
  4. CLEXANE [Concomitant]
     Dosage: UNK
  5. ESOMEPRAZOLE MAGNESIUM [Concomitant]
     Dosage: UNK
  6. FUSIDIC ACID [Concomitant]
     Dosage: UNK
  7. RIFAMPICIN [Concomitant]
     Dosage: UNK

REACTIONS (3)
  - Drug reaction with eosinophilia and systemic symptoms [Recovered/Resolved]
  - Renal impairment [Recovered/Resolved]
  - Conjunctivitis [Unknown]
